FAERS Safety Report 25997944 (Version 1)
Quarter: 2025Q4

REPORT INFORMATION
  Report Type: Spontaneous
  Country: JP (occurrence: JP)
  Receive Date: 20251105
  Receipt Date: 20251105
  Transmission Date: 20260117
  Serious: Yes (Other)
  Sender: CHEPLAPHARM
  Company Number: JP-CHEPLA-2025012539

PATIENT
  Age: 65 Year
  Sex: Male

DRUGS (2)
  1. GANCICLOVIR [Suspect]
     Active Substance: GANCICLOVIR
     Indication: Iridocyclitis
     Route: 047
  2. REMICADE [Suspect]
     Active Substance: INFLIXIMAB
     Indication: Colitis ulcerative

REACTIONS (7)
  - Infectious iridocyclitis [Recovered/Resolved with Sequelae]
  - Ocular lymphoma [Recovered/Resolved with Sequelae]
  - Open angle glaucoma [Unknown]
  - Viral corneal ulcer [Unknown]
  - Iritis [Unknown]
  - Off label use [Unknown]
  - Off label use [Unknown]
